FAERS Safety Report 21315935 (Version 2)
Quarter: 2022Q4

REPORT INFORMATION
  Report Type: Spontaneous
  Country: US (occurrence: US)
  Receive Date: 20220910
  Receipt Date: 20221001
  Transmission Date: 20230113
  Serious: No
  Sender: FDA-Public Use
  Company Number: US-drreddys-SPO/USA/22/0153862

PATIENT
  Age: 22 Year
  Sex: Female

DRUGS (1)
  1. TESTOSTERONE [Suspect]
     Active Substance: TESTOSTERONE
     Indication: Product used for unknown indication
     Dosage: 100 MG OF 10 PERCENT COMPOUNDED TESTOSTERONE GEL

REACTIONS (1)
  - Steatocystoma multiplex [Unknown]
